FAERS Safety Report 16320713 (Version 7)
Quarter: 2021Q3

REPORT INFORMATION
  Report Type: Spontaneous
  Country: US (occurrence: US)
  Receive Date: 20190516
  Receipt Date: 20210714
  Transmission Date: 20211014
  Serious: Yes (Other)
  Sender: FDA-Public Use
  Company Number: US-BAUSCH-BL-2019-013298

PATIENT
  Age: 36 Year
  Sex: Male
  Weight: 99.88 kg

DRUGS (5)
  1. DIAZEPAM. [Concomitant]
     Active Substance: DIAZEPAM
     Indication: PRODUCT USED FOR UNKNOWN INDICATION
  2. PAROXETINE. [Concomitant]
     Active Substance: PAROXETINE
     Indication: PRODUCT USED FOR UNKNOWN INDICATION
  3. QUETIAPINE. [Concomitant]
     Active Substance: QUETIAPINE
     Indication: PRODUCT USED FOR UNKNOWN INDICATION
  4. ATIVAN [Suspect]
     Active Substance: LORAZEPAM
     Route: 048
  5. ATIVAN [Suspect]
     Active Substance: LORAZEPAM
     Indication: ANXIETY
     Dosage: START DATE: ABOUT 6 MONTHS AGO
     Route: 048
     Dates: start: 2018

REACTIONS (25)
  - Headache [Recovering/Resolving]
  - Insomnia [Unknown]
  - Manufacturing facilities issue [Unknown]
  - Product availability issue [Unknown]
  - Dysphagia [Unknown]
  - Thinking abnormal [Unknown]
  - Obsessive-compulsive disorder [Not Recovered/Not Resolved]
  - Influenza like illness [Unknown]
  - Tinnitus [Unknown]
  - Feeling abnormal [Unknown]
  - Product impurity [Unknown]
  - Oral mucosal eruption [Recovered/Resolved]
  - Suspected counterfeit product [Unknown]
  - Product label issue [Unknown]
  - Condition aggravated [Not Recovered/Not Resolved]
  - Burning sensation [Unknown]
  - Mental impairment [Unknown]
  - Feeling abnormal [Not Recovered/Not Resolved]
  - Agitation [Unknown]
  - Decreased appetite [Unknown]
  - Pain [Unknown]
  - Withdrawal syndrome [Unknown]
  - Anxiety [Not Recovered/Not Resolved]
  - Drug ineffective [Unknown]
  - Product quality issue [Unknown]

NARRATIVE: CASE EVENT DATE: 2018
